FAERS Safety Report 7628148-9 (Version None)
Quarter: 2011Q3

REPORT INFORMATION
  Report Type: 
  Country: None (occurrence: None)
  Receive Date: 20110720
  Receipt Date: 20110720
  Transmission Date: 20111222
  Serious: Yes (Hospitalization)
  Sender: FDA-Public Use
  Company Number: None

PATIENT
  Age: 40 Year
  Sex: Female
  Weight: 93.3 kg

DRUGS (14)
  1. ABRAXANE [Suspect]
     Indication: BREAST CANCER
     Dosage: 205MG ONCE PER WEEK IVPB
     Route: 042
     Dates: start: 20110502, end: 20110614
  2. DEXAMETHASONE [Concomitant]
  3. EMEND [Concomitant]
  4. COMPAZINE [Concomitant]
  5. CALCIUM CARBONATE [Concomitant]
  6. BISMUTH SUBSALICYLATE [Concomitant]
  7. ALOXI [Concomitant]
  8. IMODIUM [Concomitant]
  9. DEXAMETHASONE [Concomitant]
  10. EMLA [Concomitant]
  11. PROPHYLAXIS [Concomitant]
  12. ACETAMINOPHEN [Concomitant]
  13. ODANSETRON [Concomitant]
  14. ATIVAN [Concomitant]

REACTIONS (7)
  - BREAST ABSCESS [None]
  - POSTOPERATIVE ABSCESS [None]
  - ANAEMIA [None]
  - NECROSIS [None]
  - HAEMOGLOBIN DECREASED [None]
  - OEDEMA PERIPHERAL [None]
  - SUBCUTANEOUS ABSCESS [None]
